FAERS Safety Report 20496998 (Version 1)
Quarter: 2022Q1

REPORT INFORMATION
  Report Type: Spontaneous
  Country: PL (occurrence: PL)
  Receive Date: 20220221
  Receipt Date: 20220221
  Transmission Date: 20220423
  Serious: Yes (Other)
  Sender: FDA-Public Use
  Company Number: PL-BEH-2021140061

PATIENT
  Age: 12 Month
  Sex: Male

DRUGS (6)
  1. HUMAN COAGULATION FACTOR VIII/VON WILLEBRAND FACTOR COMPLEX [Suspect]
     Active Substance: HUMAN COAGULATION FACTOR VIII/VON WILLEBRAND FACTOR COMPLEX
     Indication: Factor VIII deficiency
     Dosage: 25 INTERNATIONAL UNIT/KILOGRAM
     Dates: start: 20000403
  2. HUMAN COAGULATION FACTOR VIII/VON WILLEBRAND FACTOR COMPLEX [Suspect]
     Active Substance: HUMAN COAGULATION FACTOR VIII/VON WILLEBRAND FACTOR COMPLEX
     Dosage: 100 IU/KG EVERY 12 HOURS DAILY
     Dates: start: 20020203, end: 20030824
  3. ANTIHEMOPHILIC FACTOR, HUMAN RECOMBINANT [Suspect]
     Active Substance: ANTIHEMOPHILIC FACTOR, HUMAN RECOMBINANT
     Indication: Haemophilia
     Dosage: 25 INTERNATIONAL UNIT/KILOGRAM
  4. ANTIHEMOPHILIC FACTOR, HUMAN RECOMBINANT [Suspect]
     Active Substance: ANTIHEMOPHILIC FACTOR, HUMAN RECOMBINANT
     Dosage: 100 INTERNATIONAL UNIT/KILOGRAM, BID
  5. AMIKIN [Concomitant]
     Active Substance: AMIKACIN SULFATE
     Indication: Vascular device infection
  6. COAGULATION FACTOR VIIA RECOMBINANT HUMAN [Suspect]
     Active Substance: COAGULATION FACTOR VIIA RECOMBINANT HUMAN
     Indication: Factor VIII deficiency

REACTIONS (3)
  - Drug ineffective [Unknown]
  - Anti factor VIII antibody positive [Unknown]
  - Device related thrombosis [Unknown]
